FAERS Safety Report 8853287 (Version 1)
Quarter: 2012Q4

REPORT INFORMATION
  Report Type: 
  Country: JP (occurrence: JP)
  Receive Date: 20121022
  Receipt Date: 20121022
  Transmission Date: 20130627
  Serious: Yes (Life-Threatening)
  Sender: FDA-Public Use
  Company Number: JP-ASTRAZENECA-2012SE79771

PATIENT
  Age: 79 Year
  Sex: Male

DRUGS (2)
  1. CARBOCAIN [Suspect]
     Indication: EPIDURAL ANAESTHESIA
     Dosage: Dose unknown
     Route: 008
  2. SEVOFLURANE [Concomitant]
     Indication: GENERAL ANAESTHESIA
     Dosage: Dose unknown
     Route: 065

REACTIONS (3)
  - Ventricular tachycardia [Recovered/Resolved]
  - Ventricular arrhythmia [Recovered/Resolved]
  - Blood pressure decreased [Recovered/Resolved]
